FAERS Safety Report 20378572 (Version 1)
Quarter: 2022Q1

REPORT INFORMATION
  Report Type: Spontaneous
  Country: US (occurrence: US)
  Receive Date: 20220126
  Receipt Date: 20220126
  Transmission Date: 20220424
  Serious: No
  Sender: FDA-Public Use
  Company Number: US-RVL_Pharmaceuticals-USA-POI1255202200002

PATIENT
  Age: 54 Year
  Sex: Female

DRUGS (1)
  1. UPNEEQ [Suspect]
     Active Substance: OXYMETAZOLINE HYDROCHLORIDE
     Indication: Eyelid ptosis
     Dosage: OU
     Route: 047
     Dates: start: 20211224, end: 20211229

REACTIONS (3)
  - Scleral discolouration [Not Recovered/Not Resolved]
  - Eye pruritus [Not Recovered/Not Resolved]
  - Erythema of eyelid [Not Recovered/Not Resolved]

NARRATIVE: CASE EVENT DATE: 20211227
